FAERS Safety Report 21407448 (Version 1)
Quarter: 2022Q4

REPORT INFORMATION
  Report Type: Spontaneous
  Country: US (occurrence: US)
  Receive Date: 20221004
  Receipt Date: 20221004
  Transmission Date: 20230113
  Serious: Yes (Other)
  Sender: FDA-Public Use
  Company Number: US-drreddys-LIT/USA/22/0155313

PATIENT
  Age: 35 Year
  Sex: Female

DRUGS (4)
  1. MERCAPTOPURINE [Suspect]
     Active Substance: MERCAPTOPURINE
     Indication: Colitis microscopic
  2. BUDESONIDE [Suspect]
     Active Substance: BUDESONIDE
     Indication: Colitis microscopic
  3. PREDNISONE [Suspect]
     Active Substance: PREDNISONE
     Indication: Colitis microscopic
  4. PANCRELIPASE [Suspect]
     Active Substance: PANCRELIPASE
     Indication: Colitis microscopic

REACTIONS (1)
  - Drug ineffective for unapproved indication [Unknown]
